FAERS Safety Report 4553032-7 (Version None)
Quarter: 2005Q1

REPORT INFORMATION
  Report Type: 
  Country: None (occurrence: None)
  Receive Date: 20050113
  Receipt Date: 20050103
  Transmission Date: 20050727
  Serious: Yes (Life-Threatening)
  Sender: FDA-Public Use
  Company Number: 2004201730FR

PATIENT
  Age: 79 Year
  Sex: Male
  Weight: 90 kg

DRUGS (8)
  1. PROSTIN VR SOLUTION, STERILE (ALPROSTADIL) [Suspect]
     Indication: ILL-DEFINED DISORDER
     Dosage: SEE IMAGE
     Route: 042
     Dates: start: 20030728, end: 20030729
  2. PROSTIN VR SOLUTION, STERILE (ALPROSTADIL) [Suspect]
     Indication: ILL-DEFINED DISORDER
     Dosage: SEE IMAGE
     Route: 042
     Dates: start: 20030730
  3. ACETYLCYSTEINE [Suspect]
     Indication: ILL-DEFINED DISORDER
     Dosage: 5 G/25 ML. INTRAVENOUS
     Route: 042
     Dates: start: 20030728, end: 20030730
  4. TIMOLOL MALEATE [Concomitant]
  5. LOSARTAN POTASSIUM [Concomitant]
  6. DILTIAZEM HYDROCHLORIDE [Concomitant]
  7. GLYBURIDE [Concomitant]
  8. FLUINDIONE (FLUINDIONE) [Concomitant]

REACTIONS (18)
  - AGITATION [None]
  - ATRIAL FIBRILLATION [None]
  - CARDIAC ARREST [None]
  - CHOLESTASIS [None]
  - CONDITION AGGRAVATED [None]
  - CYTOLYTIC HEPATITIS [None]
  - DILATATION VENTRICULAR [None]
  - ELECTROMECHANICAL DISSOCIATION [None]
  - HAEMODYNAMIC INSTABILITY [None]
  - HYPERLACTACIDAEMIA [None]
  - LABILE BLOOD PRESSURE [None]
  - MULTI-ORGAN DISORDER [None]
  - NERVOUS SYSTEM DISORDER [None]
  - OPERATIVE HAEMORRHAGE [None]
  - RENAL FAILURE ACUTE [None]
  - RESPIRATORY DISORDER [None]
  - SOMNOLENCE [None]
  - VENTRICULAR TACHYCARDIA [None]
